FAERS Safety Report 10200359 (Version 1)
Quarter: 2014Q2

REPORT INFORMATION
  Report Type: Spontaneous
  Country: US (occurrence: US)
  Receive Date: 20140528
  Receipt Date: 20140528
  Transmission Date: 20141212
  Serious: No
  Sender: FDA-Public Use
  Company Number: US-B.I. PHARMACEUTICALS,INC./RIDGEFIELD-2014-BI-21954BP

PATIENT
  Sex: Female

DRUGS (8)
  1. PRADAXA [Suspect]
     Indication: ATRIAL FLUTTER
     Dosage: 300 MG
     Route: 048
     Dates: start: 2011
  2. HCTZ [Concomitant]
     Indication: HYPERTENSION
     Dosage: 25 MG
     Route: 048
  3. LEVOTHYROXINE [Concomitant]
     Indication: HYPOTHYROIDISM
     Dosage: 125 MCG
     Route: 048
  4. METFORMIN [Concomitant]
     Indication: GLYCOSYLATED HAEMOGLOBIN INCREASED
     Dosage: 500 MG
     Route: 048
  5. AMLODIPINE [Concomitant]
     Indication: HYPERTENSION
     Dosage: 5 MG
     Route: 048
  6. LISINOPRIL [Concomitant]
     Indication: HYPERTENSION
     Dosage: 40 MG
     Route: 048
  7. BUPROPION [Concomitant]
     Indication: DEPRESSION
     Dosage: 300 MG
     Route: 048
  8. KLOR-CON [Concomitant]
     Indication: BLOOD POTASSIUM DECREASED
     Dosage: 60 MEQ
     Route: 048

REACTIONS (3)
  - Road traffic accident [Recovered/Resolved]
  - Contusion [Recovered/Resolved]
  - Off label use [Unknown]
